FAERS Safety Report 8881955 (Version 1)
Quarter: 2012Q4

REPORT INFORMATION
  Report Type: 
  Country: GB (occurrence: GB)
  Receive Date: 20121101
  Receipt Date: 20121101
  Transmission Date: 20130627
  Serious: Yes (Other)
  Sender: FDA-Public Use
  Company Number: PHHY2012GB097865

PATIENT
  Age: 73 Year
  Sex: Female
  Weight: 60.33 kg

DRUGS (6)
  1. AMLODIPINE [Suspect]
     Indication: HYPERTENSION
     Dosage: 5 mg, QD
     Route: 048
     Dates: start: 20121010, end: 20121012
  2. BEDRANOL [Concomitant]
     Indication: HYPERTENSION
     Dosage: 1 DF, TID
     Route: 048
  3. ATORVASTATIN [Concomitant]
     Dosage: 10 mg, UNK
     Dates: start: 20120920
  4. SIMVASTATIN [Concomitant]
     Dates: end: 20120920
  5. ADCAL-D3 [Concomitant]
  6. FELODIPINE [Concomitant]
     Dosage: 2.5 mg, QD

REACTIONS (6)
  - Balance disorder [Not Recovered/Not Resolved]
  - Gait disturbance [Not Recovered/Not Resolved]
  - Hypotonia [Not Recovered/Not Resolved]
  - Pain in extremity [Not Recovered/Not Resolved]
  - Myalgia [Not Recovered/Not Resolved]
  - Headache [Not Recovered/Not Resolved]
